FAERS Safety Report 12597144 (Version 1)
Quarter: 2016Q3

REPORT INFORMATION
  Report Type: Spontaneous
  Country: US (occurrence: US)
  Receive Date: 20160726
  Receipt Date: 20160726
  Transmission Date: 20161109
  Serious: Yes (Other)
  Sender: FDA-Public Use
  Company Number: US-TEVA-680035USA

PATIENT
  Age: 35 Year
  Sex: Male

DRUGS (2)
  1. FELBAMATE. [Concomitant]
     Active Substance: FELBAMATE
     Indication: EPILEPSY
  2. LAMOTRIGINE. [Suspect]
     Active Substance: LAMOTRIGINE
     Indication: EPILEPSY

REACTIONS (2)
  - Toxicity to various agents [Unknown]
  - Seizure [Unknown]
